FAERS Safety Report 7474498-9 (Version None)
Quarter: 2011Q2

REPORT INFORMATION
  Report Type: 
  Country: None (occurrence: None)
  Receive Date: 20110512
  Receipt Date: 20110503
  Transmission Date: 20111010
  Serious: Yes (Other)
  Sender: FDA-Public Use
  Company Number: PHFR2010GB05749

PATIENT
  Sex: Male
  Weight: 90 kg

DRUGS (5)
  1. CLOZARIL [Suspect]
     Indication: SCHIZOPHRENIA
     Route: 048
     Dates: start: 20100713
  2. LANSOPRAZOLE [Concomitant]
     Dosage: UNK
     Route: 048
     Dates: start: 20101215
  3. CLOZARIL [Suspect]
     Dosage: 450 MG, DAILY
     Dates: start: 20101216, end: 20110331
  4. ATENOLOL [Concomitant]
     Indication: ARRHYTHMIA
     Dosage: UNK
     Route: 048
     Dates: start: 20101215
  5. SIMVASTATIN [Concomitant]
     Indication: HYPERLIPIDAEMIA
     Dosage: UNK
     Route: 048
     Dates: start: 20101215

REACTIONS (2)
  - HYPOTHYROIDISM [None]
  - PLATELET COUNT DECREASED [None]
